FAERS Safety Report 4713085-X (Version None)
Quarter: 2005Q3

REPORT INFORMATION
  Report Type: 
  Country: None (occurrence: None)
  Receive Date: 20050711
  Receipt Date: 20050624
  Transmission Date: 20060218
  Serious: No
  Sender: FDA-Public Use
  Company Number: 214813

PATIENT
  Age: 35 Year
  Sex: Male

DRUGS (7)
  1. RITUXAN [Suspect]
     Indication: CENTRAL NERVOUS SYSTEM LYMPHOMA
     Dosage: 375  MG/M2, 1/WEEK, INTRAVENOUS
     Route: 042
     Dates: start: 20050303
  2. METHOTREXATE [Concomitant]
  3. DECADRON [Concomitant]
  4. TIAGABINE (TIAGABINE HYDROCHLORIDE) [Concomitant]
  5. PHENYTOIN [Concomitant]
  6. LANSOPRAZOLE [Concomitant]
  7. HYDROCODONE BITARTRATE [Concomitant]

REACTIONS (6)
  - CONJUNCTIVAL OEDEMA [None]
  - ERYTHEMA [None]
  - EYELID OEDEMA [None]
  - PERIORBITAL OEDEMA [None]
  - SKIN DISCOLOURATION [None]
  - THERAPY NON-RESPONDER [None]
